FAERS Safety Report 14444002 (Version 1)
Quarter: 2018Q1

REPORT INFORMATION
  Report Type: Spontaneous
  Country: US (occurrence: US)
  Receive Date: 20180125
  Receipt Date: 20180125
  Transmission Date: 20180509
  Serious: Yes (Other)
  Sender: FDA-Public Use
  Company Number: US-TEIKOKU PHARMA USA-TPU2018-00052

PATIENT
  Age: 66 Year
  Sex: Male
  Weight: 98.52 kg

DRUGS (3)
  1. LIDOCAINE PATCH [Suspect]
     Active Substance: LIDOCAINE
     Indication: CONGENITAL SPINAL STENOSIS
     Dosage: APPLIES 1 PATCH TO SHOULDER (WITH 1 PATCH ON LOWER BACK, MAXIMUM THREE PATCHES) AS NEEDED FOR 12 HOU
     Dates: start: 20151220
  2. LIDOCAINE PATCH [Suspect]
     Active Substance: LIDOCAINE
     Indication: SPINAL FUSION SURGERY
  3. LIDOCAINE PATCH [Suspect]
     Active Substance: LIDOCAINE
     Indication: HEART TRANSPLANT
     Dosage: APPLIES A MAXIMUM OF 3 PATCHES,BUT NORMALLY JUST 1 PATCH APPLIED TO LOWER BACK AS NEEDED FOR 12 HOUR
     Route: 061
     Dates: start: 1982

REACTIONS (2)
  - Spinal fusion surgery [Unknown]
  - Expired product administered [Unknown]

NARRATIVE: CASE EVENT DATE: 20151220
